FAERS Safety Report 4840657-4 (Version None)
Quarter: 2005Q4

REPORT INFORMATION
  Report Type: 
  Country: None (occurrence: None)
  Receive Date: 20051026
  Receipt Date: 20050822
  Transmission Date: 20060501
  Serious: No
  Sender: FDA-Public Use
  Company Number: ACETADOTE_005

PATIENT

DRUGS (4)
  1. ACETADOTE [Suspect]
     Indication: OVERDOSE
     Dosage: 300MG/K, IV
     Route: 042
     Dates: start: 20050819, end: 20050820
  2. N-ACETYLCYSTEINE (ORAL) [Suspect]
  3. DIPHENHYDRAMINE HCL [Concomitant]
  4. SOLU-MEDROL [Concomitant]

REACTIONS (1)
  - ANAPHYLACTOID REACTION [None]
